FAERS Safety Report 6456228-2 (Version None)
Quarter: 2009Q4

REPORT INFORMATION
  Report Type: 
  Country: None (occurrence: None)
  Receive Date: 20091125
  Receipt Date: 20091113
  Transmission Date: 20100525
  Serious: Yes (Hospitalization)
  Sender: FDA-Public Use
  Company Number: US-SANOFI-AVENTIS-2009SA000791

PATIENT
  Age: 86 Year
  Sex: Female

DRUGS (2)
  1. MULTAQ [Suspect]
     Route: 048
     Dates: start: 20091021, end: 20091001
  2. SOTALOL HCL [Concomitant]
     Route: 048
     Dates: end: 20091016

REACTIONS (1)
  - CARDIAC FAILURE CONGESTIVE [None]
